FAERS Safety Report 5499209-8 (Version None)
Quarter: 2007Q4

REPORT INFORMATION
  Report Type: 
  Country: None (occurrence: None)
  Receive Date: 20071026
  Receipt Date: 20070402
  Transmission Date: 20080405
  Serious: Yes (Hospitalization, Disabling, Other)
  Sender: FDA-Public Use
  Company Number: US-AVENTIS-200618444US

PATIENT
  Sex: Female
  Weight: 68.18 kg

DRUGS (21)
  1. KETEK [Suspect]
     Indication: SINUSITIS
     Dosage: DOSE: UNKNOWN
     Route: 048
     Dates: start: 20060220
  2. LEVAQUIN [Suspect]
     Indication: SINUSITIS
     Dosage: DOSE: UNKNOWN
     Route: 048
     Dates: start: 20060123, end: 20060127
  3. LIPITOR [Concomitant]
     Dosage: DOSE: UNKNOWN
  4. LASIX [Concomitant]
     Dosage: DOSE: UNKNOWN
  5. HYDROCODONE/GUAIFENESIN COUGH SYRUP [Concomitant]
     Dosage: DOSE: UNK
  6. ALBUTEROL [Concomitant]
     Dosage: DOSE: Q 6 HOURS PRN
  7. WELLBUTRIN [Concomitant]
     Dosage: DOSE: UNK
  8. PAXIL [Concomitant]
     Dosage: DOSE: UNK
  9. K-DUR 10 [Concomitant]
     Dosage: DOSE: UNK
  10. LOPID [Concomitant]
     Dosage: DOSE: UNK
  11. ACCOLATE [Concomitant]
     Dosage: DOSE: UNK
  12. CLARINEX [Concomitant]
     Dosage: DOSE: UNK
  13. ADVAIR DISKUS 100/50 [Concomitant]
     Dosage: DOSE: UNK
  14. NIFEDINE [Concomitant]
     Dosage: DOSE: UNK
  15. PRILOSEC                           /00661201/ [Concomitant]
     Dosage: DOSE: UNK
  16. LOTENSIN                           /00909102/ [Concomitant]
     Dosage: DOSE: UNK
  17. ASPIRIN [Concomitant]
     Dosage: DOSE: UNK
  18. FOLIC ACID [Concomitant]
     Dosage: DOSE: UNK
  19. PREDNISONE [Concomitant]
     Indication: SINUSITIS
     Dosage: DOSE: UNK
  20. CEFZIL [Concomitant]
     Dates: start: 20060301
  21. PRESSORS [Concomitant]
     Indication: HYPOTENSION
     Dosage: DOSE: UNK
     Dates: start: 20070302

REACTIONS (25)
  - ABDOMINAL PAIN [None]
  - ABDOMINAL TENDERNESS [None]
  - ALANINE AMINOTRANSFERASE INCREASED [None]
  - ASPARTATE AMINOTRANSFERASE INCREASED [None]
  - ATRIAL THROMBOSIS [None]
  - BLOOD CREATININE INCREASED [None]
  - BLOOD UREA INCREASED [None]
  - CARBON DIOXIDE DECREASED [None]
  - DEPRESSION [None]
  - EXTREMITY NECROSIS [None]
  - GASTROINTESTINAL NECROSIS [None]
  - GASTROOESOPHAGEAL REFLUX DISEASE [None]
  - HYPOTENSION [None]
  - IMPAIRED HEALING [None]
  - LIVER FUNCTION TEST ABNORMAL [None]
  - MEGACOLON [None]
  - PERITONITIS [None]
  - PLATELET COUNT INCREASED [None]
  - PSEUDOMEMBRANOUS COLITIS [None]
  - SEPSIS [None]
  - SKIN NECROSIS [None]
  - SKIN ULCER [None]
  - VISUAL DISTURBANCE [None]
  - WEIGHT DECREASED [None]
  - WHITE BLOOD CELL COUNT INCREASED [None]
